FAERS Safety Report 18008995 (Version 1)
Quarter: 2020Q3

REPORT INFORMATION
  Report Type: Spontaneous
  Country: CA (occurrence: CA)
  Receive Date: 20200710
  Receipt Date: 20200710
  Transmission Date: 20201103
  Serious: Yes (Hospitalization)
  Sender: FDA-Public Use
  Company Number: CA-PFIZER INC-2020262589

PATIENT
  Age: 14 Year
  Sex: Female
  Weight: 53 kg

DRUGS (2)
  1. ACETAMINOPHEN. [Suspect]
     Active Substance: ACETAMINOPHEN
     Indication: HEADACHE
     Dosage: 975 MG
     Route: 048
  2. IBUPROFEN. [Suspect]
     Active Substance: IBUPROFEN
     Indication: HEADACHE
     Dosage: 400 MG, 1 EVERY 6 HOURS
     Route: 048

REACTIONS (6)
  - Headache [Unknown]
  - Misophonia [Unknown]
  - Nausea [Unknown]
  - Condition aggravated [Unknown]
  - Drug abuse [Unknown]
  - Photophobia [Unknown]
